FAERS Safety Report 9502575 (Version 2)
Quarter: 2013Q3

REPORT INFORMATION
  Report Type: Spontaneous
  Country: NO (occurrence: NO)
  Receive Date: 20130906
  Receipt Date: 20130909
  Transmission Date: 20140515
  Serious: Yes (Other)
  Sender: FDA-Public Use
  Company Number: NO-ELI_LILLY_AND_COMPANY-NO201308009584

PATIENT
  Sex: Female

DRUGS (8)
  1. OLANZAPINE [Suspect]
     Dosage: 1 DF, UNKNOWN
  2. WELLBUTRIN XL [Suspect]
     Indication: DEPRESSION
     Dosage: 1 DF, UNKNOWN
  3. LEVAXIN [Concomitant]
     Indication: HYPOTHYROIDISM
     Dosage: 50 UG, QD
     Route: 048
  4. KALEORID [Concomitant]
     Indication: BLOOD POTASSIUM DECREASED
     Dosage: 750 MG, QD
     Route: 048
  5. POTASSIUM CHLORIDE [Concomitant]
     Indication: HYPERTENSION
     Dosage: 100 MG, UNKNOWN
     Route: 048
  6. LOSARTAN [Concomitant]
     Dosage: 2.5 MG, UNKNOWN
     Route: 048
  7. BUPROPION [Concomitant]
     Indication: INSOMNIA
     Dosage: 7.5 MG, QD
     Route: 048
  8. ZOPICLONE [Concomitant]
     Indication: DEPRESSION
     Dosage: 42 MG, QD
     Route: 048

REACTIONS (4)
  - Fall [Recovered/Resolved]
  - Gait disturbance [Recovered/Resolved]
  - Tremor [Recovered/Resolved]
  - Compression fracture [Recovered/Resolved]
